FAERS Safety Report 4587088-2 (Version None)
Quarter: 2005Q1

REPORT INFORMATION
  Report Type: 
  Country: None (occurrence: None)
  Receive Date: 20050218
  Receipt Date: 20050217
  Transmission Date: 20050727
  Serious: Yes (Life-Threatening)
  Sender: FDA-Public Use
  Company Number: PHNU2005DE00987

PATIENT
  Sex: Male

DRUGS (3)
  1. CARBAMAZEPINE [Concomitant]
  2. SIRDALUD [Concomitant]
  3. LIORESAL [Suspect]
     Indication: MUSCLE SPASTICITY
     Dosage: 50000 UG, ONCE/SINGLE
     Route: 037
     Dates: start: 20050217, end: 20050217

REACTIONS (4)
  - CARDIOVASCULAR DISORDER [None]
  - COMA [None]
  - MEDICATION ERROR [None]
  - RESPIRATORY FAILURE [None]
